FAERS Safety Report 23273561 (Version 4)
Quarter: 2024Q1

REPORT INFORMATION
  Report Type: Spontaneous
  Country: US (occurrence: US)
  Receive Date: 20231207
  Receipt Date: 20240320
  Transmission Date: 20240410
  Serious: Yes (Hospitalization)
  Sender: FDA-Public Use
  Company Number: US-PFIZER INC-202300414898

PATIENT
  Age: 82 Year
  Sex: Female
  Weight: 68 kg

DRUGS (9)
  1. PAXLOVID [Suspect]
     Active Substance: NIRMATRELVIR\RITONAVIR
     Indication: COVID-19 treatment
     Dosage: ALSO REPORTED AS 10*2 MG 3 DAILY AND 3X/DAY
     Dates: start: 20231115, end: 20231120
  2. RALOXIFENE [Concomitant]
     Active Substance: RALOXIFENE
     Dosage: TAKEN FOR SEVERAL YEARS
  3. MONTELUKAST [Concomitant]
     Active Substance: MONTELUKAST SODIUM
     Dosage: TAKEN FOR SEVERAL YEARS
  4. FAMOTIDINE [Concomitant]
     Active Substance: FAMOTIDINE
     Dosage: TAKEN FOR SEVERAL YEARS
  5. DIAZEPAM [Concomitant]
     Active Substance: DIAZEPAM
     Dosage: AS NEEDED
  6. BREO ELLIPTA [Concomitant]
     Active Substance: FLUTICASONE FUROATE\VILANTEROL TRIFENATATE
     Dosage: TAKEN FOR SEVERAL YEARS
  7. LEVOTHYROXINE [Concomitant]
     Active Substance: LEVOTHYROXINE\LEVOTHYROXINE SODIUM
     Dosage: 30 PLUS YEARS
  8. SIMVASTATIN [Concomitant]
     Active Substance: SIMVASTATIN
     Dosage: TAKEN FOR SEVERAL YEARS
     Dates: end: 20231113
  9. SIMVASTATIN [Concomitant]
     Active Substance: SIMVASTATIN
     Dosage: UNK
     Dates: start: 2023

REACTIONS (4)
  - Dysgeusia [Recovered/Resolved]
  - COVID-19 [Recovered/Resolved]
  - Disease recurrence [Recovered/Resolved]
  - Off label use [Unknown]

NARRATIVE: CASE EVENT DATE: 20231101
